FAERS Safety Report 4496559-9 (Version None)
Quarter: 2004Q4

REPORT INFORMATION
  Report Type: 
  Country: None (occurrence: None)
  Receive Date: 20041104
  Receipt Date: 20041020
  Transmission Date: 20050328
  Serious: No
  Sender: FDA-Public Use
  Company Number: CART-10374

PATIENT
  Age: 50 Year
  Sex: Male

DRUGS (1)
  1. CARTICEL [Suspect]
     Indication: BONE DISORDER
     Dosage: 1 NA ONCE IS
     Dates: start: 19960927, end: 19960927

REACTIONS (2)
  - MENISCUS LESION [None]
  - PATELLOFEMORAL PAIN SYNDROME [None]
